FAERS Safety Report 10208662 (Version 1)
Quarter: 2014Q2

REPORT INFORMATION
  Report Type: Spontaneous
  Country: US (occurrence: US)
  Receive Date: 20140530
  Receipt Date: 20140530
  Transmission Date: 20141212
  Serious: Yes (Death, Other)
  Sender: FDA-Public Use
  Company Number: US-BRISTOL-MYERS SQUIBB COMPANY-20790200

PATIENT
  Age: 61 Year
  Sex: Male

DRUGS (4)
  1. KENALOG-40 INJ [Suspect]
     Indication: ARTHRALGIA
  2. MULTIVITAMIN [Concomitant]
  3. FINASTERIDE [Concomitant]
  4. CHOLESTYRAMINE [Concomitant]

REACTIONS (2)
  - Completed suicide [Fatal]
  - Psychotic disorder [Unknown]
